FAERS Safety Report 10925893 (Version 1)
Quarter: 2015Q1

REPORT INFORMATION
  Report Type: Spontaneous
  Country: ES (occurrence: ES)
  Receive Date: 20150318
  Receipt Date: 20150318
  Transmission Date: 20150721
  Serious: Yes (Other)
  Sender: FDA-Public Use
  Company Number: ES-JNJFOC-20150305895

PATIENT
  Age: 68 Year
  Sex: Female

DRUGS (3)
  1. FRENADOL COMPLEX [Suspect]
     Active Substance: ACETAMINOPHEN\ASCORBIC ACID\CAFFEINE CITRATE\CHLORPHENIRAMINE MALEATE\DEXTROMETHORPHAN HYDROBROMIDE
     Indication: PRODUCT USED FOR UNKNOWN INDICATION
     Route: 048
     Dates: start: 20150218, end: 20150218
  2. PARACETAMOL [Suspect]
     Active Substance: ACETAMINOPHEN
     Route: 065
  3. PARACETAMOL [Suspect]
     Active Substance: ACETAMINOPHEN
     Indication: PRODUCT USED FOR UNKNOWN INDICATION
     Route: 065
     Dates: start: 20150218

REACTIONS (2)
  - Tachycardia [Unknown]
  - Nervousness [Unknown]

NARRATIVE: CASE EVENT DATE: 20150218
